FAERS Safety Report 18016476 (Version 1)
Quarter: 2020Q3

REPORT INFORMATION
  Report Type: Spontaneous
  Country: BR (occurrence: BR)
  Receive Date: 20200714
  Receipt Date: 20200714
  Transmission Date: 20201103
  Serious: Yes (Other)
  Sender: FDA-Public Use
  Company Number: BR-009507513-2007BRA003287

PATIENT
  Sex: Female

DRUGS (1)
  1. REMERON SOLTAB [Suspect]
     Active Substance: MIRTAZAPINE
     Dosage: UNK
     Route: 048

REACTIONS (2)
  - Oedema peripheral [Not Recovered/Not Resolved]
  - Erysipelas [Not Recovered/Not Resolved]
